FAERS Safety Report 5753508-0 (Version None)
Quarter: 2008Q2

REPORT INFORMATION
  Report Type: 
  Country: None (occurrence: None)
  Receive Date: 20080530
  Receipt Date: 20080521
  Transmission Date: 20081010
  Serious: Yes (Hospitalization, Other)
  Sender: FDA-Public Use
  Company Number: PHHO2008TW06639

PATIENT
  Sex: Female

DRUGS (10)
  1. BLINDED NO TREATMENT RECEIVED NOMED [Suspect]
     Indication: PANCREATIC NEUROENDOCRINE TUMOUR
     Dosage: UNK
     Route: 048
  2. BLINDED PLACEBO COMP-PLA+ [Suspect]
     Indication: PANCREATIC NEUROENDOCRINE TUMOUR
     Dosage: UNK
     Route: 048
  3. BLINDED RAD 666 RAD+TAB+CMAS [Suspect]
     Indication: PANCREATIC NEUROENDOCRINE TUMOUR
     Dosage: UNK
     Route: 048
  4. BLINDED NO TREATMENT RECEIVED NOMED [Suspect]
     Dosage: UNK
     Dates: end: 20080429
  5. BLINDED PLACEBO COMP-PLA+ [Suspect]
     Dosage: UNK
     Dates: end: 20080429
  6. BLINDED RAD 666 RAD+TAB+CMAS [Suspect]
     Dosage: UNK
     Dates: end: 20080429
  7. BLINDED NO TREATMENT RECEIVED NOMED [Suspect]
     Dosage: UNK
     Route: 048
     Dates: start: 20080430, end: 20080519
  8. BLINDED PLACEBO COMP-PLA+ [Suspect]
     Dosage: UNK
     Route: 048
     Dates: start: 20080430, end: 20080519
  9. BLINDED RAD 666 RAD+TAB+CMAS [Suspect]
     Dosage: UNK
     Route: 048
     Dates: start: 20080430, end: 20080519
  10. TOFRANIL [Suspect]
     Dosage: UNK
     Dates: start: 20080516

REACTIONS (10)
  - BLADDER DISTENSION [None]
  - BLOOD PRESSURE SYSTOLIC INCREASED [None]
  - CONFUSIONAL STATE [None]
  - CONTUSION [None]
  - DIABETES MELLITUS INADEQUATE CONTROL [None]
  - FALL [None]
  - GENERAL PHYSICAL HEALTH DETERIORATION [None]
  - TONGUE ULCERATION [None]
  - URINARY RETENTION [None]
  - URINE OUTPUT DECREASED [None]
